FAERS Safety Report 12153057 (Version 2)
Quarter: 2016Q2

REPORT INFORMATION
  Report Type: Report from Study
  Country: GR (occurrence: GR)
  Receive Date: 20160305
  Receipt Date: 20160409
  Transmission Date: 20160815
  Serious: Yes (Disabling, Other)
  Sender: FDA-Public Use
  Company Number: GR-AMGEN-GRCNI2016026358

PATIENT
  Sex: Male
  Weight: 82 kg

DRUGS (1)
  1. ETANERCEPT [Suspect]
     Active Substance: ETANERCEPT
     Indication: PSORIASIS
     Dosage: 50 MG, QWK
     Route: 058
     Dates: start: 20080714

REACTIONS (2)
  - Retinal detachment [Recovered/Resolved with Sequelae]
  - Dysuria [Recovered/Resolved]

NARRATIVE: CASE EVENT DATE: 2012
